FAERS Safety Report 17658144 (Version 1)
Quarter: 2020Q2

REPORT INFORMATION
  Report Type: Spontaneous
  Country: US (occurrence: US)
  Receive Date: 20200411
  Receipt Date: 20200411
  Transmission Date: 20200713
  Serious: No
  Sender: FDA-Public Use
  Company Number: US-TEVA-2020-US-1220396

PATIENT
  Sex: Female

DRUGS (3)
  1. METRONIDAZOLE. [Suspect]
     Active Substance: METRONIDAZOLE
     Route: 065
  2. FLUCONAZOLE. [Suspect]
     Active Substance: FLUCONAZOLE
     Route: 065
  3. BOSENTAN ZYDUS [Suspect]
     Active Substance: BOSENTAN
     Indication: PULMONARY ARTERIAL HYPERTENSION
     Dosage: 250 MILLIGRAM DAILY;
     Route: 048

REACTIONS (6)
  - Gastrointestinal hypomotility [Unknown]
  - Presyncope [Unknown]
  - Gastrointestinal infection [Unknown]
  - Abdominal distension [Unknown]
  - Fatigue [Unknown]
  - Dizziness [Unknown]
